FAERS Safety Report 9581819 (Version 2)
Quarter: 2013Q4

REPORT INFORMATION
  Report Type: Report from Study
  Country: ES (occurrence: ES)
  Receive Date: 20131002
  Receipt Date: 20131011
  Transmission Date: 20140711
  Serious: Yes (Hospitalization)
  Sender: FDA-Public Use
  Company Number: ES-ROCHE-1281478

PATIENT
  Age: 64 Year
  Sex: Female

DRUGS (10)
  1. PERTUZUMAB [Suspect]
     Indication: BREAST CANCER
     Dosage: LOADING DOSE AS PER PROTOCOL
     Route: 042
     Dates: start: 20130802
  2. PERTUZUMAB [Suspect]
     Dosage: 3 WEEKS, MAINTENANCE DOSE AS PER PROTOCOL, MOST RECENT DOSE ON 13/SEP/2013
     Route: 042
  3. TRASTUZUMAB [Suspect]
     Indication: BREAST CANCER
     Dosage: LOADING DOSE AS PER PROTOCOL,
     Route: 042
     Dates: start: 20130802
  4. TRASTUZUMAB [Suspect]
     Dosage: MOST RECENT DOSE ON 13/SEP/2013, MAINTENANCE DOSE  AS PER PROTOCOL, 3 WEEKS
     Route: 042
  5. DOCETAXEL [Suspect]
     Indication: BREAST CANCER
     Dosage: 3 WEEKS CYCLE, MOST RECENT DOSE ON 13/SEP/2013
     Route: 042
     Dates: start: 20130802
  6. ENALAPRIL [Concomitant]
     Route: 065
     Dates: start: 2013
  7. HYDROCHLOROTHIAZIDE [Concomitant]
     Route: 065
     Dates: start: 2013
  8. ACETYLSALICYLIC ACID [Concomitant]
     Indication: THROMBOSIS
     Route: 065
     Dates: start: 2013
  9. RANITIDINE [Concomitant]
     Indication: PREMEDICATION
     Route: 065
     Dates: start: 20130802
  10. DEXAMETHASONE [Concomitant]
     Route: 065
     Dates: start: 20130802

REACTIONS (1)
  - Atrial fibrillation [Recovered/Resolved]
